FAERS Safety Report 9735532 (Version 1)
Quarter: 2013Q4

REPORT INFORMATION
  Report Type: Spontaneous
  Country: US (occurrence: US)
  Receive Date: 20131206
  Receipt Date: 20131206
  Transmission Date: 20140711
  Serious: No
  Sender: FDA-Public Use
  Company Number: US-GILEAD-2009-0023604

PATIENT
  Sex: Female
  Weight: 56.25 kg

DRUGS (15)
  1. LETAIRIS [Suspect]
     Indication: PULMONARY ARTERIAL HYPERTENSION
     Route: 048
     Dates: start: 20090720
  2. OXYGEN [Concomitant]
  3. WARFARIN [Concomitant]
  4. FUROSEMIDE [Concomitant]
  5. LORAZEPAM [Concomitant]
  6. TYLENOL [Concomitant]
  7. PREMARIN [Concomitant]
  8. METOPROLOL [Concomitant]
  9. FEXOFENADINE [Concomitant]
  10. VITAMIN B-12 [Concomitant]
  11. ACTONEL [Concomitant]
  12. LEVOXYL [Concomitant]
  13. VITAMIN D3 [Concomitant]
  14. BENICAR [Concomitant]
  15. IMODIUM [Concomitant]

REACTIONS (2)
  - Pruritus [Unknown]
  - Local swelling [Unknown]
